FAERS Safety Report 8445399-4 (Version None)
Quarter: 2012Q2

REPORT INFORMATION
  Report Type: 
  Country: None (occurrence: None)
  Receive Date: 20120618
  Receipt Date: 20111230
  Transmission Date: 20120825
  Serious: No
  Sender: FDA-Public Use
  Company Number: US-TEVA-2012000018

PATIENT
  Age: 65 Year
  Sex: Male

DRUGS (3)
  1. FENTORA [Suspect]
     Route: 002
  2. OXYCODONE HCL [Concomitant]
  3. METHADONE HCL [Concomitant]

REACTIONS (2)
  - ABDOMINAL PAIN [None]
  - DRUG ADMINISTRATION ERROR [None]
